FAERS Safety Report 5838794-0 (Version None)
Quarter: 2008Q3

REPORT INFORMATION
  Report Type: 
  Country: None (occurrence: None)
  Receive Date: 20080808
  Receipt Date: 20080724
  Transmission Date: 20090109
  Serious: Yes (Hospitalization, Other)
  Sender: FDA-Public Use
  Company Number: PHEH2008US06180

PATIENT
  Sex: Female
  Weight: 79.9 kg

DRUGS (25)
  1. DICLOFENAC SODIUM [Suspect]
     Dosage: 75 UNK, TID
     Route: 048
  2. DIOVAN [Suspect]
     Dosage: 160 UNK, QD
     Route: 048
  3. ENBREL [Suspect]
     Indication: RHEUMATOID ARTHRITIS
     Dosage: 50 MG, 1 IN 1 WEEKS SC
     Dates: start: 20000212, end: 20060815
  4. FUROSEMIDE [Suspect]
     Dosage: 20 MG, QD
  5. FLUOXETINE [Concomitant]
     Dosage: 10 MG, QD
  6. PANTOPRAZOLE SODIUM [Concomitant]
     Dosage: 40 MG, BID
  7. PREDNISONE [Concomitant]
     Dosage: 15 MG, QD
  8. ATORVASTATIN [Concomitant]
     Dosage: 10 MG, QD
  9. CARVEDILOL [Concomitant]
     Dosage: 3.125 MG, BID
  10. IRON [Concomitant]
     Dosage: 325 MG, BID
  11. ALBUTEROL SULFATE [Concomitant]
     Dosage: UNK
  12. IPRATROPIUM BROMIDE [Concomitant]
     Dosage: UNK
  13. WARFARIN SODIUM [Concomitant]
     Dosage: 4 MG, QD
  14. ERGOCALCIFEROL [Concomitant]
     Dosage: 400 IU, BID
  15. CALCIUM CARBONATE [Concomitant]
     Dosage: UNK
  16. POTASSIUM CHLORIDE [Concomitant]
     Dosage: 10 MEQ, QD
  17. ACETAMINOPHEN AND OXYCODONE HCL [Concomitant]
     Dosage: UNK
  18. NIFEDIPINE [Concomitant]
     Dosage: 30 MG, QD
  19. TIOTROPIUM [Concomitant]
     Dosage: 18 UG, QD
  20. PROCRIT [Concomitant]
     Dosage: 20000 IU, QW2
  21. METOPROLOL TARTRATE [Concomitant]
     Dosage: 50 MG, BID
  22. GUAIFENESIN [Concomitant]
     Dosage: UNK
  23. CEFTRIAXONE [Concomitant]
     Dosage: 1 G, QD
     Route: 042
  24. ACETAMINOPHEN [Concomitant]
     Dosage: UNK
  25. REGLAN [Concomitant]
     Dosage: UNK

REACTIONS (45)
  - ANAEMIA [None]
  - AORTIC ANEURYSM [None]
  - BLOOD ALBUMIN DECREASED [None]
  - BLOOD CHLORIDE INCREASED [None]
  - BLOOD CREATININE INCREASED [None]
  - BLOOD PRESSURE INADEQUATELY CONTROLLED [None]
  - BLOOD UREA INCREASED [None]
  - BRONCHITIS [None]
  - CARDIAC FAILURE CONGESTIVE [None]
  - CARDIOMYOPATHY [None]
  - CATARACT [None]
  - CELLULITIS [None]
  - CHILLS [None]
  - CHRONIC OBSTRUCTIVE PULMONARY DISEASE [None]
  - DECREASED APPETITE [None]
  - DEEP VEIN THROMBOSIS [None]
  - DEHYDRATION [None]
  - GLOMERULAR FILTRATION RATE DECREASED [None]
  - GROIN PAIN [None]
  - HAEMATOCHEZIA [None]
  - HAEMATOCRIT DECREASED [None]
  - HAEMATURIA [None]
  - HAEMOGLOBIN DECREASED [None]
  - HYPERLIPIDAEMIA [None]
  - HYPERTENSION [None]
  - KIDNEY SMALL [None]
  - MALAISE [None]
  - MYOCARDIAL INFARCTION [None]
  - NAUSEA [None]
  - NEPHRITIS ALLERGIC [None]
  - OEDEMA PERIPHERAL [None]
  - PAIN [None]
  - PNEUMONIA [None]
  - PYREXIA [None]
  - RASH ERYTHEMATOUS [None]
  - RENAL ARTERY STENOSIS [None]
  - RENAL ATROPHY [None]
  - RENAL CYST [None]
  - RENAL FAILURE ACUTE [None]
  - RENAL FAILURE CHRONIC [None]
  - RENAL TUBULAR NECROSIS [None]
  - URINARY SEDIMENT ABNORMAL [None]
  - URINARY TRACT INFECTION [None]
  - URINE ANALYSIS ABNORMAL [None]
  - WHITE BLOOD CELL COUNT INCREASED [None]
